FAERS Safety Report 14756970 (Version 8)
Quarter: 2019Q2

REPORT INFORMATION
  Report Type: Spontaneous
  Country: FR (occurrence: FR)
  Receive Date: 20180413
  Receipt Date: 20190416
  Transmission Date: 20190711
  Serious: Yes (Hospitalization, Other)
  Sender: FDA-Public Use
  Company Number: FR-AUROBINDO-AUR-APL-2018-019998

PATIENT

DRUGS (19)
  1. JANUMET [Suspect]
     Active Substance: METFORMIN HYDROCHLORIDE\SITAGLIPTIN PHOSPHATE
     Dosage: 1 DOSAGE FORM
     Route: 065
  2. INSULIN [Suspect]
     Active Substance: INSULIN NOS
     Indication: DIABETES MELLITUS
     Dosage: UNK
  3. INSULIN [Suspect]
     Active Substance: INSULIN NOS
     Dosage: RAPID-ACTING INSULIN, AT MIDDAY ()
  4. TN [Concomitant]
     Active Substance: TROLNITRATE
     Indication: DIABETES MELLITUS
     Dosage: UNK, QD AT NOON
     Route: 065
  5. METFORMIN FILM-COATED TABLET [Suspect]
     Active Substance: METFORMIN HYDROCHLORIDE
     Indication: DIABETES MELLITUS
     Dosage: 1000 MILLIGRAM, ONCE A DAY
     Route: 048
  6. JANUMET [Suspect]
     Active Substance: METFORMIN HYDROCHLORIDE\SITAGLIPTIN PHOSPHATE
     Dosage: IN THE MORNING
     Route: 048
  7. JANUMET [Suspect]
     Active Substance: METFORMIN HYDROCHLORIDE\SITAGLIPTIN PHOSPHATE
     Dosage: MORNING AND EVENING
     Route: 048
  8. METFORMIN FILM-COATED TABLET [Suspect]
     Active Substance: METFORMIN HYDROCHLORIDE
     Dosage: IN THE MORNING AND IN THE EVENING
     Route: 048
  9. DIAMICRON [Suspect]
     Active Substance: GLICLAZIDE
     Dosage: 2 TABLETS, IN THE MORNING
  10. LANTUS [Suspect]
     Active Substance: INSULIN GLARGINE
     Indication: DIABETES MELLITUS
     Dosage: UNK UNK, ONCE A DAY
     Route: 065
  11. INSULIN [Suspect]
     Active Substance: INSULIN NOS
     Dosage: RAPID-ACTING INSULIN, AT MIDDAY ()
  12. DIAMICRON [Suspect]
     Active Substance: GLICLAZIDE
     Indication: DIABETES MELLITUS
     Dosage: 2 DOSAGE FORM
  13. HEMI-DAONIL [Suspect]
     Active Substance: GLYBURIDE
     Indication: DIABETES MELLITUS
     Dosage: HALF AN HOUR BEFORE THE USUAL TIME ()
     Route: 048
  14. NOVORAPID [Suspect]
     Active Substance: INSULIN ASPART
     Indication: PRODUCT USED FOR UNKNOWN INDICATION
     Dosage: 3 IU, QAM
     Route: 065
  15. COKENZEN [Concomitant]
     Active Substance: CANDESARTAN CILEXETIL\HYDROCHLOROTHIAZIDE
     Indication: HYPERTENSION
     Dosage: UNK
     Route: 065
  16. JANUMET [Suspect]
     Active Substance: METFORMIN HYDROCHLORIDE\SITAGLIPTIN PHOSPHATE
     Dosage: IN THE MORNING 8 AM AND IN TH EVENING 8 PM ()
     Route: 048
     Dates: start: 20180321
  17. INSULIN ASPART [Suspect]
     Active Substance: INSULIN ASPART
     Indication: PRODUCT USED FOR UNKNOWN INDICATION
     Dosage: THERAPY START DATE: 21 MAR 2018
  18. JANUMET [Suspect]
     Active Substance: METFORMIN HYDROCHLORIDE\SITAGLIPTIN PHOSPHATE
     Indication: DIABETES MELLITUS
     Dosage: TWICE DAILY (2)
     Route: 048
  19. JANUMET [Suspect]
     Active Substance: METFORMIN HYDROCHLORIDE\SITAGLIPTIN PHOSPHATE
     Dosage: IN THE MORNING 8 AM AND IN TH EVENING 8 PM
     Route: 048

REACTIONS (12)
  - Blood pressure decreased [Not Recovered/Not Resolved]
  - Hypertensive crisis [Unknown]
  - Palpitations [Not Recovered/Not Resolved]
  - Chest pain [Unknown]
  - Inappropriate schedule of product administration [Unknown]
  - Weight decreased [Unknown]
  - Blood pressure increased [Unknown]
  - Gout [Not Recovered/Not Resolved]
  - Hypoglycaemia [Not Recovered/Not Resolved]
  - Hyperglycaemia [Not Recovered/Not Resolved]
  - Heart rate increased [Unknown]
  - Pulse abnormal [Not Recovered/Not Resolved]

NARRATIVE: CASE EVENT DATE: 201712
